FAERS Safety Report 18581250 (Version 1)
Quarter: 2020Q4

REPORT INFORMATION
  Report Type: Spontaneous
  Country: US (occurrence: US)
  Receive Date: 20201204
  Receipt Date: 20201204
  Transmission Date: 20210114
  Serious: No
  Sender: FDA-Public Use
  Company Number: US-PERRIGO-20US014828

PATIENT
  Age: 61 Year
  Sex: Female
  Weight: 49.43 kg

DRUGS (4)
  1. DICLOFENAC SODIUM. [Suspect]
     Active Substance: DICLOFENAC SODIUM
     Indication: PAIN
     Dosage: 2 GRAMS, 2 TO 3 TIMES DAILY
     Route: 061
     Dates: start: 20201004, end: 20201010
  2. DICLOFENAC SODIUM. [Suspect]
     Active Substance: DICLOFENAC SODIUM
     Indication: JOINT STIFFNESS
  3. SPIRONOLACTONE. [Concomitant]
     Active Substance: SPIRONOLACTONE
     Indication: ACNE
     Dosage: UNKNOWN, UNKNOWN
     Route: 048
     Dates: start: 201904
  4. CLINDAMYCIN                        /00166003/ [Concomitant]
     Active Substance: CLINDAMYCIN PHOSPHATE
     Indication: ACNE
     Dosage: UNKNOWN, UNKNOWN
     Route: 061
     Dates: start: 201904

REACTIONS (7)
  - Therapeutic product effect incomplete [Unknown]
  - Underdose [Recovered/Resolved]
  - Inappropriate schedule of product administration [Recovered/Resolved]
  - Product administered at inappropriate site [Recovered/Resolved]
  - Application site rash [Recovering/Resolving]
  - Application site pain [Recovered/Resolved]
  - Hypersensitivity [Recovering/Resolving]

NARRATIVE: CASE EVENT DATE: 202010
